FAERS Safety Report 14063228 (Version 2)
Quarter: 2017Q4

REPORT INFORMATION
  Report Type: Spontaneous
  Country: US (occurrence: US)
  Receive Date: 20171009
  Receipt Date: 20171116
  Transmission Date: 20180321
  Serious: No
  Sender: FDA-Public Use
  Company Number: US-ASTRAZENECA-2017SE99795

PATIENT
  Age: 680 Month
  Sex: Female
  Weight: 70.8 kg

DRUGS (1)
  1. BYDUREON [Suspect]
     Active Substance: EXENATIDE
     Indication: TYPE 2 DIABETES MELLITUS
     Route: 058
     Dates: start: 2016

REACTIONS (3)
  - Underdose [Unknown]
  - Glycosylated haemoglobin increased [Unknown]
  - Device malfunction [Unknown]

NARRATIVE: CASE EVENT DATE: 201703
